FAERS Safety Report 4822934-6 (Version None)
Quarter: 2005Q4

REPORT INFORMATION
  Report Type: 
  Country: None (occurrence: None)
  Receive Date: 20051104
  Receipt Date: 20051025
  Transmission Date: 20060501
  Serious: Yes (Hospitalization, Other)
  Sender: FDA-Public Use
  Company Number: 2005147801

PATIENT
  Age: 12 Year
  Sex: Male

DRUGS (4)
  1. SERTRALINE HCL [Suspect]
     Indication: DEPRESSION
     Dosage: 25 MG (1 D)
  2. CLOMIPRAMINE HCL [Suspect]
     Indication: DEPRESSION
     Dosage: 25 MG (1 D)
  3. ALPRAZOLAM [Concomitant]
  4. AMITRIPTYLINE HYDROCHLORIDE [Concomitant]

REACTIONS (14)
  - BLOOD CHLORIDE INCREASED [None]
  - BLOOD CREATININE INCREASED [None]
  - BLOOD POTASSIUM DECREASED [None]
  - BLOOD PRESSURE FLUCTUATION [None]
  - BLOOD UREA INCREASED [None]
  - BLOOD URINE PRESENT [None]
  - CSF TEST ABNORMAL [None]
  - DIABETES INSIPIDUS [None]
  - GENERAL PHYSICAL HEALTH DETERIORATION [None]
  - GERM CELL CANCER [None]
  - HAEMOGLOBIN DECREASED [None]
  - HYPERNATRAEMIA [None]
  - HYPERTHERMIA [None]
  - SEROTONIN SYNDROME [None]
